FAERS Safety Report 8448892 (Version 5)
Quarter: 2013Q1

REPORT INFORMATION
  Report Type: Spontaneous
  Country: US (occurrence: None)
  Receive Date: 20120301
  Receipt Date: 20130308
  Transmission Date: 20140127
  Serious: Yes (Other)
  Sender: FDA-Public Use
  Company Number: AUR-APL-2012-01095

PATIENT
  Age: 26 Year
  Sex: Male
  Weight: 69.4 kg

DRUGS (3)
  1. AMOXICILLIN [Suspect]
     Indication: CHRONIC SINUSITIS
     Dates: start: 20111205, end: 20111216
  2. AMOXICILLIN [Suspect]
     Indication: SINUSITIS
     Dates: start: 20111205, end: 20111216
  3. MECLIZINE [Concomitant]

REACTIONS (18)
  - VIIth nerve paralysis [None]
  - Skin discolouration [None]
  - Crying [None]
  - Abdominal pain lower [None]
  - Adrenal disorder [None]
  - Acoustic neuroma [None]
  - Neoplasm malignant [None]
  - Product counterfeit [None]
  - Depression [None]
  - Weight decreased [None]
  - Chronic sinusitis [None]
  - Condition aggravated [None]
  - Feeling abnormal [None]
  - Tinnitus [None]
  - Paraesthesia [None]
  - Hypoaesthesia [None]
  - Paralysis [None]
  - Neoplasm malignant [None]
